FAERS Safety Report 22612842 (Version 2)
Quarter: 2024Q1

REPORT INFORMATION
  Report Type: Spontaneous
  Country: US (occurrence: US)
  Receive Date: 20230617
  Receipt Date: 20240102
  Transmission Date: 20240409
  Serious: Yes (Other)
  Sender: FDA-Public Use
  Company Number: US-SUN PHARMACEUTICAL INDUSTRIES LTD-2023R1-393520

PATIENT
  Age: 20 Year
  Sex: Male

DRUGS (1)
  1. ACETAMINOPHEN AND CODEINE [Suspect]
     Active Substance: ACETAMINOPHEN\CODEINE PHOSPHATE
     Indication: Procedural pain
     Dosage: 1 TABLET OF 300MG/30MG
     Route: 048

REACTIONS (1)
  - Pancreatitis [Recovered/Resolved]
